FAERS Safety Report 5963088-2 (Version None)
Quarter: 2008Q4

REPORT INFORMATION
  Report Type: 
  Country: None (occurrence: None)
  Receive Date: 20081119
  Receipt Date: 20081009
  Transmission Date: 20090506
  Serious: No
  Sender: FDA-Public Use
  Company Number: WAES 0810USA01828

PATIENT
  Age: 59 Year
  Sex: Female

DRUGS (4)
  1. JANUVIA [Suspect]
     Indication: TYPE 2 DIABETES MELLITUS
     Dosage: 100 MG/DAILY/PO
     Route: 048
     Dates: start: 20080201
  2. ACIPHEX [Concomitant]
  3. ATACAND HCT [Concomitant]
  4. ZOCOR [Concomitant]

REACTIONS (7)
  - COUGH [None]
  - HEADACHE [None]
  - INSOMNIA [None]
  - OROPHARYNGEAL PAIN [None]
  - POSTNASAL DRIP [None]
  - SINUSITIS [None]
  - UPPER RESPIRATORY TRACT INFECTION [None]
